FAERS Safety Report 4512037-2 (Version None)
Quarter: 2004Q4

REPORT INFORMATION
  Report Type: 
  Country: None (occurrence: None)
  Receive Date: 20041123
  Receipt Date: 20041111
  Transmission Date: 20050328
  Serious: Yes (Death)
  Sender: FDA-Public Use
  Company Number: US-JNJFOC-20041103665

PATIENT
  Age: 71 Year
  Sex: Male

DRUGS (15)
  1. TYLENOL [Suspect]
     Indication: PAIN
     Dosage: 650 MG Q4H PRN
     Dates: start: 20040401
  2. AVELOX [Suspect]
     Indication: PNEUMONIA
     Dosage: 400MG IV QD
     Route: 042
     Dates: start: 20040401, end: 20040401
  3. ALBUTEROL [Suspect]
     Indication: PNEUMONIA
     Dosage: Q4H
     Dates: start: 20040401
  4. ATROVENT [Suspect]
     Indication: PNEUMONIA
     Dosage: Q6H
     Dates: start: 20040401
  5. ROCEPHIN [Suspect]
     Dosage: 1 G, 2 IN 1 DAY, INTRAVENOUS
     Route: 042
     Dates: start: 20040401
  6. LISINOPRIL [Concomitant]
  7. HYDROCHLOROTHIAZIDE [Concomitant]
  8. COUMADIN [Concomitant]
  9. ATENOLOL [Concomitant]
  10. BCG VACCINE (BCG VACCINE) [Concomitant]
  11. ATROVENT [Concomitant]
  12. SEREVENT [Concomitant]
  13. AZMACORT [Concomitant]
  14. FLOMAX [Concomitant]
  15. MULTIVITAMIN (MULTIVITAMINS) [Concomitant]

REACTIONS (19)
  - ACUTE PULMONARY OEDEMA [None]
  - APNOEA [None]
  - BLOOD CHLORIDE DECREASED [None]
  - BLOOD GLUCOSE INCREASED [None]
  - BLOOD POTASSIUM DECREASED [None]
  - BRADYCARDIA [None]
  - CARDIAC ARREST [None]
  - CARDIAC FAILURE CONGESTIVE [None]
  - COMA [None]
  - CONFUSIONAL STATE [None]
  - CYANOSIS [None]
  - ELECTROMECHANICAL DISSOCIATION [None]
  - HAEMOPTYSIS [None]
  - HYPERHIDROSIS [None]
  - PROTHROMBIN TIME SHORTENED [None]
  - PULMONARY EMBOLISM [None]
  - PULSE ABSENT [None]
  - RENAL FAILURE [None]
  - TACHYCARDIA [None]
